FAERS Safety Report 4989288-6 (Version None)
Quarter: 2006Q2

REPORT INFORMATION
  Report Type: 
  Country: None (occurrence: None)
  Receive Date: 20060502
  Receipt Date: 20060424
  Transmission Date: 20061013
  Serious: Yes (Other)
  Sender: FDA-Public Use
  Company Number: FR-ABBOTT-06P-056-0331672-00

PATIENT
  Age: 41 Year
  Sex: Male

DRUGS (6)
  1. KALETRA [Suspect]
     Indication: ACQUIRED IMMUNODEFICIENCY SYNDROME
     Route: 048
     Dates: start: 20060101, end: 20060101
  2. NORVIR [Suspect]
     Indication: ACQUIRED IMMUNODEFICIENCY SYNDROME
     Route: 048
     Dates: start: 20060101, end: 20060101
  3. FOSAMPRENAVIR [Concomitant]
     Indication: ACQUIRED IMMUNODEFICIENCY SYNDROME
     Route: 048
     Dates: start: 20060101, end: 20060101
  4. AMPRENAVIR [Concomitant]
     Indication: ACQUIRED IMMUNODEFICIENCY SYNDROME
     Route: 048
     Dates: start: 20060101, end: 20060101
  5. TRIZIVIR [Concomitant]
     Indication: ACQUIRED IMMUNODEFICIENCY SYNDROME
     Route: 048
     Dates: start: 20060101, end: 20060101
  6. ENFUVIRTIDE [Concomitant]
     Indication: ACQUIRED IMMUNODEFICIENCY SYNDROME
     Route: 048
     Dates: start: 20060101, end: 20060101

REACTIONS (4)
  - DRUG TOXICITY [None]
  - ENCEPHALOPATHY [None]
  - LEUKOENCEPHALOPATHY [None]
  - VISUAL DISTURBANCE [None]
